FAERS Safety Report 13677059 (Version 2)
Quarter: 2018Q1

REPORT INFORMATION
  Report Type: Report from Study
  Country: BR (occurrence: BR)
  Receive Date: 20170622
  Receipt Date: 20180118
  Transmission Date: 20180508
  Serious: Yes (Other)
  Sender: FDA-Public Use
  Company Number: PHHY2017BR090940

PATIENT
  Sex: Female
  Weight: 50 kg

DRUGS (2)
  1. DIOVAN HCT [Suspect]
     Active Substance: HYDROCHLOROTHIAZIDE\VALSARTAN
     Indication: HYPERTENSION
     Dosage: 1 DF (HYDROCHLOOROTHIAZIDE 12.5/VALSARTAN 160 MG), QD
     Route: 048
  2. AMITRIPTYLINE [Concomitant]
     Active Substance: AMITRIPTYLINE
     Indication: DEPRESSION
     Dosage: 2 DF, QD (STARTED 4 YEARS AGO)
     Route: 048

REACTIONS (2)
  - Senile dementia [Recovering/Resolving]
  - Hypothyroidism [Recovering/Resolving]
